FAERS Safety Report 6047695-7 (Version None)
Quarter: 2009Q1

REPORT INFORMATION
  Report Type: 
  Country: None (occurrence: None)
  Receive Date: 20090123
  Receipt Date: 20090119
  Transmission Date: 20090719
  Serious: Yes (Hospitalization)
  Sender: FDA-Public Use
  Company Number: ES-BAYER-200911414GPV

PATIENT
  Age: 59 Year
  Sex: Female

DRUGS (2)
  1. ACTIRA [Suspect]
     Indication: DRUG USE FOR UNKNOWN INDICATION
     Dosage: TOTAL DAILY DOSE: 400 MG  UNIT DOSE: 400 MG
     Route: 048
     Dates: start: 20081121, end: 20081201
  2. EURADAL [Concomitant]
     Indication: DRUG USE FOR UNKNOWN INDICATION
     Dosage: TOTAL DAILY DOSE: 5 MG  UNIT DOSE: 5 MG

REACTIONS (3)
  - ARTHRALGIA [None]
  - ASTHENIA [None]
  - POLYNEUROPATHY [None]
